FAERS Safety Report 21925923 (Version 4)
Quarter: 2023Q1

REPORT INFORMATION
  Report Type: Report from Study
  Country: GB (occurrence: GB)
  Receive Date: 20230130
  Receipt Date: 20230218
  Transmission Date: 20230418
  Serious: Yes (Other)
  Sender: FDA-Public Use
  Company Number: GB-JNJFOC-20230125093

PATIENT
  Age: 85 Year
  Sex: Male

DRUGS (8)
  1. STELARA [Suspect]
     Active Substance: USTEKINUMAB
     Indication: Colitis ulcerative
     Dosage: STRENGTH: 90.00 MG/ML
     Route: 058
  2. STELARA [Suspect]
     Active Substance: USTEKINUMAB
  3. STELARA [Suspect]
     Active Substance: USTEKINUMAB
  4. STELARA [Suspect]
     Active Substance: USTEKINUMAB
  5. STELARA [Suspect]
     Active Substance: USTEKINUMAB
     Indication: Colitis ulcerative
     Dosage: 90.00 MG/ML
     Route: 058
  6. STELARA [Suspect]
     Active Substance: USTEKINUMAB
  7. STELARA [Suspect]
     Active Substance: USTEKINUMAB
  8. STELARA [Suspect]
     Active Substance: USTEKINUMAB

REACTIONS (5)
  - Colitis ulcerative [Unknown]
  - Device leakage [Unknown]
  - Syringe issue [Unknown]
  - Accidental exposure to product [Unknown]
  - Underdose [Unknown]

NARRATIVE: CASE EVENT DATE: 20230101
